FAERS Safety Report 9752002 (Version 1)
Quarter: 2013Q4

REPORT INFORMATION
  Report Type: Spontaneous
  Country: DE (occurrence: None)
  Receive Date: 20131211
  Receipt Date: 20131211
  Transmission Date: 20140711
  Serious: Yes (Other)
  Sender: FDA-Public Use
  Company Number: 2059160

PATIENT
  Age: 34 Year
  Sex: Female

DRUGS (2)
  1. DOCETAXEL [Suspect]
     Indication: INVASIVE DUCTAL BREAST CARCINOMA
  2. CYCLOPHOSPHAMIDE [Suspect]
     Indication: INVASIVE DUCTAL BREAST CARCINOMA

REACTIONS (7)
  - Pre-eclampsia [None]
  - Maternal exposure during pregnancy [None]
  - Placental insufficiency [None]
  - Oligohydramnios [None]
  - HELLP syndrome [None]
  - Caesarean section [None]
  - Premature delivery [None]
